FAERS Safety Report 9477421 (Version 2)
Quarter: 2013Q4

REPORT INFORMATION
  Report Type: Spontaneous
  Country: JP (occurrence: JP)
  Receive Date: 20130826
  Receipt Date: 20131115
  Transmission Date: 20140711
  Serious: Yes (Life-Threatening, Hospitalization)
  Sender: FDA-Public Use
  Company Number: JP-ROCHE-1266386

PATIENT
  Age: 35 Year
  Sex: Male
  Weight: 59 kg

DRUGS (7)
  1. AVASTIN [Suspect]
     Indication: ANAPLASTIC ASTROCYTOMA
     Dosage: DOSAGE IS UNCERTAIN.?LAST DOSE PRIOR TO EVENT: 03/JUL/2013
     Route: 041
     Dates: start: 20130619
  2. PREDONINE [Concomitant]
     Indication: ANAPLASTIC ASTROCYTOMA
     Route: 048
  3. TAKEPRON [Concomitant]
     Indication: ANAPLASTIC ASTROCYTOMA
     Route: 048
  4. LOXONIN [Concomitant]
     Indication: ANAPLASTIC ASTROCYTOMA
     Dosage: TON
     Route: 048
  5. KEPPRA [Concomitant]
     Route: 048
  6. DEPAKENE-R [Concomitant]
     Route: 048
  7. EXCEGRAN [Concomitant]
     Route: 048

REACTIONS (4)
  - Hepatic function abnormal [Recovered/Resolved]
  - Malaise [Unknown]
  - Pyrexia [Unknown]
  - Hepatic enzyme increased [Unknown]
